FAERS Safety Report 6797671-1 (Version None)
Quarter: 2010Q2

REPORT INFORMATION
  Report Type: 
  Country: None (occurrence: None)
  Receive Date: 20100622
  Receipt Date: 20090811
  Transmission Date: 20101027
  Serious: Yes (Disabling)
  Sender: FDA-Public Use
  Company Number: APP201000125

PATIENT
  Age: 45 Year
  Sex: Female

DRUGS (9)
  1. SENSORCAINE [Suspect]
     Indication: MUSCULOSKELETAL PAIN
     Dosage: 300 ML, INTRA-ARTICULAR
     Route: 014
     Dates: start: 20040902
  2. I-FLOW ON-Q PAINBUSTER PAIN PUMP [Suspect]
     Indication: MUSCULOSKELETAL PAIN
     Dates: start: 20040902
  3. I-FLOW ON-Q PAINBUSTER PAIN PUMP [Suspect]
     Indication: MUSCULOSKELETAL PAIN
     Dates: start: 20050217
  4. I-FLOW ON-Q PAINBUSTER PAIN PUMP [Suspect]
  5. MARCAINE [Suspect]
     Indication: MUSCULOSKELETAL PAIN
     Dosage: 270 ML
     Dates: start: 20050217
  6. SENSORCAINE [Suspect]
     Indication: MUSCULOSKELETAL PAIN
     Dosage: 20 ML
  7. MARCAINE HYDROCHLORIDE W/ EPINEPHRINE [Suspect]
     Indication: MUSCULOSKELETAL PAIN
     Dosage: 20 ML, INTRA-ARTICULAR
     Route: 014
  8. TRIAMCINOLONE [Concomitant]
  9. KENALOG [Concomitant]

REACTIONS (16)
  - ARTHROFIBROSIS [None]
  - AUTOIMMUNE DISORDER [None]
  - BURSITIS [None]
  - CARPAL TUNNEL SYNDROME [None]
  - CHONDROLYSIS [None]
  - CYST [None]
  - EPICONDYLITIS [None]
  - HYPOTHYROIDISM [None]
  - MEDICAL DEVICE COMPLICATION [None]
  - MUSCULOSKELETAL PAIN [None]
  - NERVE ROOT COMPRESSION [None]
  - OSTEOARTHRITIS [None]
  - POST PROCEDURAL HAEMORRHAGE [None]
  - PROCEDURAL PAIN [None]
  - ROTATOR CUFF SYNDROME [None]
  - TENDON RUPTURE [None]
